FAERS Safety Report 7716607-X (Version None)
Quarter: 2011Q3

REPORT INFORMATION
  Report Type: 
  Country: None (occurrence: None)
  Receive Date: 20110829
  Receipt Date: 20110826
  Transmission Date: 20111222
  Serious: Yes (Life-Threatening)
  Sender: FDA-Public Use
  Company Number: TR-BAYER-2011-078035

PATIENT
  Age: 37 Year
  Sex: Male

DRUGS (1)
  1. GADAVIST [Suspect]
     Indication: IMAGING PROCEDURE

REACTIONS (2)
  - CARDIO-RESPIRATORY ARREST [None]
  - APNOEA [None]
